FAERS Safety Report 6243181-X (Version None)
Quarter: 2009Q2

REPORT INFORMATION
  Report Type: 
  Country: None (occurrence: None)
  Receive Date: 20090624
  Receipt Date: 20090331
  Transmission Date: 20091009
  Serious: Yes (Hospitalization)
  Sender: FDA-Public Use
  Company Number: TR-ELI_LILLY_AND_COMPANY-TR200906002384

PATIENT
  Age: 59 Year
  Sex: Male

DRUGS (4)
  1. HUMALOG MIX 75/25 [Suspect]
     Indication: DIABETES MELLITUS
     Route: 058
     Dates: start: 20080313
  2. HUMALOG MIX 75/25 [Suspect]
     Dosage: 18 U, EACH EVENING
     Route: 058
     Dates: start: 20080313
  3. HUMALOG MIX 75/25 [Suspect]
     Dosage: 14 U, EACH EVENING
     Route: 058
  4. INSULIN [Concomitant]
     Dosage: UNK, UNKNOWN
     Route: 065

REACTIONS (3)
  - BLOOD GLUCOSE DECREASED [None]
  - BLOOD GLUCOSE INCREASED [None]
  - TREMOR [None]
